FAERS Safety Report 19713373 (Version 1)
Quarter: 2021Q3

REPORT INFORMATION
  Report Type: Spontaneous
  Country: US (occurrence: US)
  Receive Date: 20210817
  Receipt Date: 20210817
  Transmission Date: 20211014
  Serious: No
  Sender: FDA-Public Use
  Company Number: None

PATIENT
  Age: 80 Year
  Sex: Male

DRUGS (2)
  1. PROTAMINE SULFATE (PROTAMINE S04 10MG/ML INJ) [Suspect]
     Active Substance: PROTAMINE SULFATE
     Indication: CARDIAC OPERATION
     Dates: start: 20210629, end: 20210629
  2. PROTAMINE SULFATE (PROTAMINE S04 10MG/ML INJ) [Suspect]
     Active Substance: PROTAMINE SULFATE
     Indication: VASCULAR OPERATION
     Dates: start: 20210629, end: 20210629

REACTIONS (1)
  - Hypotension [None]

NARRATIVE: CASE EVENT DATE: 20210629
